FAERS Safety Report 11910365 (Version 1)
Quarter: 2016Q1

REPORT INFORMATION
  Report Type: Spontaneous
  Country: IT (occurrence: FR)
  Receive Date: 20160112
  Receipt Date: 20160112
  Transmission Date: 20160526
  Serious: Yes (Hospitalization)
  Sender: FDA-Public Use
  Company Number: FR-FRI-1000081989

PATIENT
  Age: 47 Year
  Sex: Female

DRUGS (2)
  1. MONUROL [Suspect]
     Active Substance: FOSFOMYCIN TROMETHAMINE
     Indication: CYSTITIS
     Dosage: 1 DF
     Route: 048
     Dates: start: 20151114, end: 20151114
  2. NORFLOXACINE [Concomitant]
     Active Substance: NORFLOXACIN
     Indication: CYSTITIS
     Dosage: 800 MG
     Route: 048
     Dates: start: 20151116, end: 20151118

REACTIONS (2)
  - Drug ineffective [Recovered/Resolved]
  - Pseudomembranous colitis [Recovered/Resolved]

NARRATIVE: CASE EVENT DATE: 20151119
